FAERS Safety Report 14053209 (Version 4)
Quarter: 2017Q4

REPORT INFORMATION
  Report Type: Report from Study
  Country: None (occurrence: NL)
  Receive Date: 20171006
  Receipt Date: 20171206
  Transmission Date: 20180321
  Serious: Yes (Hospitalization, Other)
  Sender: FDA-Public Use
  Company Number: NL-ABBVIE-17K-114-2122028-00

PATIENT
  Age: 72 Year
  Sex: Female

DRUGS (1)
  1. DUODOPA [Suspect]
     Active Substance: CARBIDOPA\LEVODOPA
     Indication: PARKINSON^S DISEASE
     Dosage: MD 4, CD 4.1, ED 3.2, CND 3.3, END 1.7
     Route: 050
     Dates: start: 20150401

REACTIONS (7)
  - Blood potassium abnormal [Not Recovered/Not Resolved]
  - Loss of consciousness [Recovered/Resolved]
  - Head injury [Recovered/Resolved]
  - Syncope [Unknown]
  - Confusional state [Not Recovered/Not Resolved]
  - Fall [Recovered/Resolved]
  - Confusional state [Recovered/Resolved]

NARRATIVE: CASE EVENT DATE: 20170926
